FAERS Safety Report 4919365-7 (Version None)
Quarter: 2006Q1

REPORT INFORMATION
  Report Type: 
  Country: None (occurrence: None)
  Receive Date: 20060113
  Receipt Date: 20051101
  Transmission Date: 20060701
  Serious: No
  Sender: FDA-Public Use
  Company Number: 2005SP003797

PATIENT
  Age: 62 Year
  Sex: Female

DRUGS (12)
  1. LUNESTA [Suspect]
     Indication: INITIAL INSOMNIA
     Dosage: 3 MG; HS; ORAL
     Route: 048
     Dates: start: 20051028, end: 20051030
  2. WARFARIN [Concomitant]
  3. ETANERCEPT [Concomitant]
  4. METHOTREXATE [Concomitant]
  5. FOSAMAX [Concomitant]
  6. FOLIC ACID [Concomitant]
  7. LORCET-HD [Concomitant]
  8. DEMADEX [Concomitant]
  9. SOMA [Concomitant]
  10. ZOLOFT [Concomitant]
  11. POTASSIUM CHLORIDE [Concomitant]
  12. HALCION [Concomitant]

REACTIONS (2)
  - DRUG INEFFECTIVE [None]
  - INITIAL INSOMNIA [None]
